FAERS Safety Report 7433044-6 (Version None)
Quarter: 2011Q2

REPORT INFORMATION
  Report Type: 
  Country: None (occurrence: None)
  Receive Date: 20110422
  Receipt Date: 20110419
  Transmission Date: 20111010
  Serious: Yes (Death, Hospitalization)
  Sender: FDA-Public Use
  Company Number: US-MERCK-0810USA03896

PATIENT
  Age: 64 Year
  Sex: Female

DRUGS (5)
  1. VYTORIN [Suspect]
     Route: 048
  2. HYDROXYCHLOROQUINE SULFATE [Suspect]
     Route: 065
  3. DILTIAZEM HYDROCHLORIDE [Concomitant]
     Route: 065
  4. PRINIVIL [Concomitant]
     Route: 048
  5. RALOXIFENE HYDROCHLORIDE [Concomitant]
     Route: 065

REACTIONS (15)
  - NOCARDIOSIS [None]
  - RESPIRATORY FAILURE [None]
  - HYPOREFLEXIA [None]
  - DYSPHONIA [None]
  - RESPIRATORY TRACT INFECTION [None]
  - MYOPATHY [None]
  - DYSPNOEA EXERTIONAL [None]
  - DYSPHAGIA [None]
  - MYOPATHY TOXIC [None]
  - ASPERGILLOSIS [None]
  - GENERAL PHYSICAL HEALTH DETERIORATION [None]
  - DYSPNOEA [None]
  - LUNG DISORDER [None]
  - MUSCULAR WEAKNESS [None]
  - PULMONARY FIBROSIS [None]
